FAERS Safety Report 4822064-3 (Version None)
Quarter: 2005Q4

REPORT INFORMATION
  Report Type: 
  Country: None (occurrence: None)
  Receive Date: 20051103
  Receipt Date: 20051019
  Transmission Date: 20060501
  Serious: Yes (Other)
  Sender: FDA-Public Use
  Company Number: 2005-DE-04376GD

PATIENT
  Age: 5 Year
  Sex: Male

DRUGS (1)
  1. PREDNISONE [Suspect]
     Indication: STATUS EPILEPTICUS
     Dosage: 2 MG/KG, PO
     Route: 048

REACTIONS (5)
  - AGGRESSION [None]
  - DISEASE RECURRENCE [None]
  - HYPERTENSION [None]
  - INFECTION [None]
  - OBESITY [None]
